FAERS Safety Report 8259866-X (Version None)
Quarter: 2012Q2

REPORT INFORMATION
  Report Type: 
  Country: None (occurrence: None)
  Receive Date: 20120404
  Receipt Date: 20120328
  Transmission Date: 20120825
  Serious: Yes (Other)
  Sender: FDA-Public Use
  Company Number: CA-GLAXOSMITHKLINE-A0971510A

PATIENT
  Sex: Female

DRUGS (2)
  1. TYKERB [Suspect]
     Indication: BREAST CANCER METASTATIC
     Dosage: 1250MG PER DAY
     Route: 048
     Dates: start: 20111101, end: 20120201
  2. XELODA [Suspect]
     Indication: BREAST CANCER METASTATIC
     Route: 065
     Dates: end: 20120201

REACTIONS (2)
  - BREAST CANCER METASTATIC [None]
  - BRAIN NEOPLASM [None]
